FAERS Safety Report 10540209 (Version 1)
Quarter: 2014Q4

REPORT INFORMATION
  Report Type: Spontaneous
  Country: IT (occurrence: None)
  Receive Date: 20141022
  Receipt Date: 20141022
  Transmission Date: 20150529
  Serious: Yes (Hospitalization)
  Sender: FDA-Public Use
  Company Number: 2582460

PATIENT
  Age: 76 Year
  Sex: Male
  Weight: 65 kg

DRUGS (8)
  1. (TALOFEN) [Concomitant]
  2. NAVELBINE [Suspect]
     Active Substance: VINORELBINE TARTRATE
     Indication: SQUAMOUS CELL CARCINOMA OF LUNG
     Dates: start: 20140819, end: 20140826
  3. (CARDIRENE) [Concomitant]
  4. (SUCRALFATE) [Concomitant]
  5. (EN) [Concomitant]
  6. (SOLDESAM) [Concomitant]
  7. (LANSOPRAZOLE) (LANSOPRAZOLE) [Concomitant]
     Active Substance: LANSOPRAZOLE
  8. (CARBOPLATIN) [Suspect]
     Active Substance: CARBOPLATIN
     Indication: LUNG SQUAMOUS CELL CARCINOMA STAGE III
     Dosage: 5 AUC (UNKNOWN) INTRAVENOUS (NOT OTHERWISE SPECIFIED)
     Dates: start: 20140819, end: 20140819

REACTIONS (14)
  - Sinus tachycardia [None]
  - Neutropenia [None]
  - Aggression [None]
  - Vomiting [None]
  - Bone marrow toxicity [None]
  - Diarrhoea [None]
  - Leukopenia [None]
  - Hypotension [None]
  - Agitation [None]
  - Dizziness [None]
  - Confusional state [None]
  - Anxiety [None]
  - Tongue dry [None]
  - Asthenia [None]

NARRATIVE: CASE EVENT DATE: 20140826
